FAERS Safety Report 24695330 (Version 1)
Quarter: 2024Q4

REPORT INFORMATION
  Report Type: Spontaneous
  Country: US (occurrence: None)
  Receive Date: 20241204
  Receipt Date: 20241204
  Transmission Date: 20250115
  Serious: Yes (Death, Hospitalization, Other)
  Sender: Public
  Company Number: None

PATIENT
  Sex: Female
  Weight: 112.6 kg

DRUGS (1)
  1. BREYANZI [Suspect]
     Active Substance: LISOCABTAGENE MARALEUCEL

REACTIONS (5)
  - Immune effector cell-associated neurotoxicity syndrome [None]
  - Breast haematoma [None]
  - Lactic acidosis [None]
  - Mental status changes [None]
  - Sepsis [None]
